FAERS Safety Report 15798330 (Version 1)
Quarter: 2019Q1

REPORT INFORMATION
  Report Type: Spontaneous
  Country: US (occurrence: US)
  Receive Date: 20190103
  Receipt Date: 20190103
  Transmission Date: 20190417
  Serious: No
  Sender: FDA-Public Use
  Company Number: None

PATIENT

DRUGS (1)
  1. FENOPROFEN CALCIUM. [Suspect]
     Active Substance: FENOPROFEN CALCIUM
     Route: 048

REACTIONS (4)
  - Diarrhoea [None]
  - Wrong product administered [None]
  - Drug dispensed to wrong patient [None]
  - Vomiting [None]

NARRATIVE: CASE EVENT DATE: 2018
